FAERS Safety Report 8172226-5 (Version None)
Quarter: 2012Q1

REPORT INFORMATION
  Report Type: 
  Country: None (occurrence: None)
  Receive Date: 20120228
  Receipt Date: 20120215
  Transmission Date: 20120608
  Serious: Yes (Hospitalization, Disabling)
  Sender: FDA-Public Use
  Company Number: US-CELGENEUS-163-21880-12012788

PATIENT
  Sex: Male

DRUGS (6)
  1. VELCADE [Concomitant]
     Route: 065
     Dates: start: 20111206
  2. REVLIMID [Suspect]
     Indication: MULTIPLE MYELOMA
     Route: 048
     Dates: start: 20111206, end: 20120110
  3. REVLIMID [Suspect]
     Dosage: 15 MILLIGRAM
     Route: 048
  4. STEROIDS [Concomitant]
     Route: 065
  5. DECADRON [Concomitant]
     Dosage: 40 MILLIGRAM
     Route: 048
  6. PAIN MEDICATION [Concomitant]
     Indication: BACK PAIN
     Route: 065

REACTIONS (3)
  - ASTHENIA [None]
  - FAECAL INCONTINENCE [None]
  - PERFORMANCE STATUS DECREASED [None]
